FAERS Safety Report 14097667 (Version 1)
Quarter: 2017Q4

REPORT INFORMATION
  Report Type: Spontaneous
  Country: US (occurrence: US)
  Receive Date: 20171016
  Receipt Date: 20171016
  Transmission Date: 20180321
  Serious: No
  Sender: FDA-Public Use
  Company Number: US-AMGEN-USASP2017003560

PATIENT
  Age: 72 Year
  Sex: Female

DRUGS (2)
  1. PROLIA [Suspect]
     Active Substance: DENOSUMAB
     Indication: OSTEOPOROSIS POSTMENOPAUSAL
     Dosage: 60 MG, UNK
     Route: 065
     Dates: start: 20161004
  2. GOLDENSEAL ROOT [Concomitant]
     Dosage: 500 MG, UNK

REACTIONS (4)
  - Pain [Unknown]
  - Back pain [Unknown]
  - Groin pain [Unknown]
  - Gait disturbance [Unknown]
